FAERS Safety Report 11499867 (Version 2)
Quarter: 2015Q3

REPORT INFORMATION
  Report Type: Report from Study
  Country: AR (occurrence: AR)
  Receive Date: 20150914
  Receipt Date: 20150928
  Transmission Date: 20151125
  Serious: Yes (Hospitalization, Other)
  Sender: FDA-Public Use
  Company Number: AR-ORION CORPORATION ORION PHARMA-ENTC2015-0502

PATIENT
  Sex: Male

DRUGS (1)
  1. STALEVO [Suspect]
     Active Substance: CARBIDOPA\ENTACAPONE\LEVODOPA
     Indication: PARKINSON^S DISEASE
     Dosage: 100 OT
     Route: 065
     Dates: start: 2012

REACTIONS (2)
  - Hypertension [Recovering/Resolving]
  - Parkinson^s disease [Recovering/Resolving]
